FAERS Safety Report 7712069-7 (Version None)
Quarter: 2011Q3

REPORT INFORMATION
  Report Type: 
  Country: None (occurrence: None)
  Receive Date: 20110823
  Receipt Date: 20110818
  Transmission Date: 20111222
  Serious: Yes (Hospitalization)
  Sender: FDA-Public Use
  Company Number: 2011080152

PATIENT
  Sex: Female

DRUGS (2)
  1. ALLEGRA [Concomitant]
  2. ASTELIN [Suspect]
     Indication: RHINITIS ALLERGIC
     Dosage: 548 MCG (548 MCG, 1 IN 1 D), IN
     Dates: start: 20101001

REACTIONS (1)
  - HIP ARTHROPLASTY [None]
